FAERS Safety Report 4863922-3 (Version None)
Quarter: 2005Q4

REPORT INFORMATION
  Report Type: 
  Country: None (occurrence: None)
  Receive Date: 20051219
  Receipt Date: 20051208
  Transmission Date: 20060501
  Serious: Yes (Other)
  Sender: FDA-Public Use
  Company Number: 2005-12-0429

PATIENT
  Age: 56 Year
  Sex: Male
  Weight: 61 kg

DRUGS (8)
  1. PEG-INTRON [Suspect]
     Indication: HEPATITIS C
     Dosage: 100-50*MCG QW SUBCUTANEOUS
     Route: 058
     Dates: start: 20050330, end: 20050330
  2. PEG-INTRON [Suspect]
     Indication: HEPATITIS C
     Dosage: 100-50*MCG QW SUBCUTANEOUS
     Route: 058
     Dates: start: 20050406, end: 20050817
  3. PEG-INTRON [Suspect]
     Indication: HEPATITIS C
     Dosage: 100-50*MCG QW SUBCUTANEOUS
     Route: 058
     Dates: start: 20050330, end: 20051130
  4. PEG-INTRON [Suspect]
     Indication: HEPATITIS C
     Dosage: 100-50*MCG QW SUBCUTANEOUS
     Route: 058
     Dates: start: 20050801, end: 20051130
  5. REBETOL [Suspect]
     Indication: HEPATITIS C
     Dosage: 800-400* MG ORAL
     Route: 048
     Dates: start: 20050330, end: 20050412
  6. REBETOL [Suspect]
     Indication: HEPATITIS C
     Dosage: 800-400* MG ORAL
     Route: 048
     Dates: start: 20050413, end: 20050817
  7. REBETOL [Suspect]
     Indication: HEPATITIS C
     Dosage: 800-400* MG ORAL
     Route: 048
     Dates: start: 20050330, end: 20051130
  8. REBETOL [Suspect]
     Indication: HEPATITIS C
     Dosage: 800-400* MG ORAL
     Route: 048
     Dates: start: 20050801, end: 20051130

REACTIONS (7)
  - CEREBRAL HAEMORRHAGE [None]
  - ERYTHEMA [None]
  - FALL [None]
  - FATIGUE [None]
  - HAEMOGLOBIN DECREASED [None]
  - PLATELET COUNT DECREASED [None]
  - PRURITUS [None]
